FAERS Safety Report 7199205-9 (Version None)
Quarter: 2010Q4

REPORT INFORMATION
  Report Type: 
  Country: None (occurrence: None)
  Receive Date: 20101228
  Receipt Date: 20101214
  Transmission Date: 20110411
  Serious: Yes (Other)
  Sender: FDA-Public Use
  Company Number: PHFR2010GB05893

PATIENT
  Age: 86 Year
  Sex: Male

DRUGS (2)
  1. EXELON [Suspect]
     Indication: DEMENTIA
     Dosage: 4.6 MG/ 24 HOUR
  2. EXELON [Suspect]
     Dosage: 9.5 MG/ 24 HOUR

REACTIONS (1)
  - GLOMERULAR FILTRATION RATE DECREASED [None]
